FAERS Safety Report 12568170 (Version 3)
Quarter: 2016Q3

REPORT INFORMATION
  Report Type: Report from Study
  Country: US (occurrence: US)
  Receive Date: 20160718
  Receipt Date: 20160802
  Transmission Date: 20161109
  Serious: Yes (Hospitalization)
  Sender: FDA-Public Use
  Company Number: US-ACTELION-A-US2016-139463

PATIENT
  Age: 64 Year
  Sex: Female

DRUGS (2)
  1. TRACLEER [Suspect]
     Active Substance: BOSENTAN
     Indication: CHRONIC OBSTRUCTIVE PULMONARY DISEASE
     Dosage: UNK
     Route: 048
     Dates: start: 20160516, end: 20160608
  2. TRACLEER [Suspect]
     Active Substance: BOSENTAN
     Indication: INTERSTITIAL LUNG DISEASE

REACTIONS (5)
  - Pyrexia [Recovered/Resolved with Sequelae]
  - Atrial fibrillation [Recovered/Resolved with Sequelae]
  - Condition aggravated [Recovered/Resolved with Sequelae]
  - Electrocardiogram QT interval [Recovered/Resolved with Sequelae]
  - Cardioversion [Recovered/Resolved with Sequelae]

NARRATIVE: CASE EVENT DATE: 20160531
